FAERS Safety Report 20697909 (Version 1)
Quarter: 2022Q2

REPORT INFORMATION
  Report Type: Spontaneous
  Country: US (occurrence: US)
  Receive Date: 20220412
  Receipt Date: 20220412
  Transmission Date: 20220721
  Serious: Yes (Other)
  Sender: FDA-Public Use
  Company Number: US-ABBVIE-22K-163-4326093-00

PATIENT
  Age: 29 Year
  Sex: Female

DRUGS (31)
  1. VICODIN [Suspect]
     Active Substance: ACETAMINOPHEN\HYDROCODONE BITARTRATE
     Indication: Fracture
     Route: 048
     Dates: start: 2004, end: 2010
  2. VICODIN [Suspect]
     Active Substance: ACETAMINOPHEN\HYDROCODONE BITARTRATE
     Indication: Pain
  3. OXYCODONE [Suspect]
     Active Substance: OXYCODONE
     Indication: Fracture
     Route: 048
     Dates: start: 2004, end: 2010
  4. OXYCODONE [Suspect]
     Active Substance: OXYCODONE
     Indication: Pain
  5. TRAMADOL HCL [Suspect]
     Active Substance: TRAMADOL HYDROCHLORIDE
     Indication: Multiple fractures
     Dosage: AS NEEDED
     Route: 048
     Dates: start: 19931030
  6. TRAMADOL HCL [Suspect]
     Active Substance: TRAMADOL HYDROCHLORIDE
     Indication: Pain
  7. ACETAMINOPHEN\HYDROCODONE [Suspect]
     Active Substance: ACETAMINOPHEN\HYDROCODONE
     Indication: Pain
     Dosage: 10/325 MG ?1 OR 2 TABLETS AS NEEDED
     Route: 048
     Dates: start: 2008
  8. ACETAMINOPHEN\HYDROCODONE [Suspect]
     Active Substance: ACETAMINOPHEN\HYDROCODONE
     Dosage: 10/325 MG
     Route: 048
     Dates: start: 2006
  9. ACETAMINOPHEN\HYDROCODONE [Suspect]
     Active Substance: ACETAMINOPHEN\HYDROCODONE
     Dosage: 10/325 MG?TAKE 2-3 TABLETS AS NEEDED (MAX 12 TABLETS/DAY)
     Route: 048
     Dates: start: 2006
  10. ACETAMINOPHEN\HYDROCODONE [Suspect]
     Active Substance: ACETAMINOPHEN\HYDROCODONE
     Dosage: 10/325 MG
     Route: 048
     Dates: start: 2007
  11. NORCO [Suspect]
     Active Substance: ACETAMINOPHEN\HYDROCODONE BITARTRATE
     Indication: Lower limb fracture
     Route: 048
     Dates: start: 2004, end: 2010
  12. NORCO [Suspect]
     Active Substance: ACETAMINOPHEN\HYDROCODONE BITARTRATE
     Indication: Pain
  13. OXYCONTIN [Suspect]
     Active Substance: OXYCODONE HYDROCHLORIDE
     Indication: Multiple fractures
     Route: 048
     Dates: start: 2004, end: 2010
  14. OXYCONTIN [Suspect]
     Active Substance: OXYCODONE HYDROCHLORIDE
     Indication: Pain
  15. OXYCODONE [Suspect]
     Active Substance: OXYCODONE
     Indication: Pain
     Dosage: 2-3 TABLETS ?MALLINCKRODT
     Route: 048
     Dates: start: 2007
  16. OXYCODONE [Suspect]
     Active Substance: OXYCODONE
     Route: 048
     Dates: start: 2006
  17. OXYCODONE [Suspect]
     Active Substance: OXYCODONE
     Route: 048
     Dates: start: 2008
  18. OXYCODONE [Suspect]
     Active Substance: OXYCODONE
     Dosage: 1 OR 2 TAB
     Route: 048
     Dates: start: 2008
  19. OXYCODONE [Suspect]
     Active Substance: OXYCODONE
     Route: 048
     Dates: start: 2007
  20. XANAX [Concomitant]
     Active Substance: ALPRAZOLAM
     Indication: Depression
     Dates: start: 2004, end: 2010
  21. XANAX [Concomitant]
     Active Substance: ALPRAZOLAM
     Indication: Anxiety
  22. METHOTREXATE [Concomitant]
     Active Substance: METHOTREXATE
     Indication: Arthritis
     Dates: start: 2004, end: 2006
  23. PREDNISONE [Concomitant]
     Active Substance: PREDNISONE
     Indication: Arthritis
     Dates: start: 2004, end: 2006
  24. FELDENE [Concomitant]
     Active Substance: PIROXICAM
     Indication: Arthritis
     Dates: start: 2004, end: 2006
  25. FELDENE [Concomitant]
     Active Substance: PIROXICAM
     Indication: Inflammation
  26. ADVAIR HFA [Concomitant]
     Active Substance: FLUTICASONE PROPIONATE\SALMETEROL XINAFOATE
     Indication: Asthma
     Dates: start: 2004
  27. ALBUTEROL [Concomitant]
     Active Substance: ALBUTEROL
     Indication: Asthma
  28. CELEXA [Concomitant]
     Active Substance: CITALOPRAM HYDROBROMIDE
     Indication: Depression
  29. CELEXA [Concomitant]
     Active Substance: CITALOPRAM HYDROBROMIDE
     Indication: Anxiety
  30. SOMA [Concomitant]
     Active Substance: CARISOPRODOL
     Indication: Pain
     Dates: start: 2004, end: 2020
  31. SOMA [Concomitant]
     Active Substance: CARISOPRODOL
     Indication: Anxiety

REACTIONS (7)
  - Drug dependence [Unknown]
  - Amniorrhoea [Recovered/Resolved]
  - Headache [Recovered/Resolved]
  - Vitreous floaters [Recovered/Resolved]
  - Gestational hypertension [Recovered/Resolved]
  - Maternal exposure during pregnancy [Unknown]
  - Live birth [Unknown]

NARRATIVE: CASE EVENT DATE: 20080317
